FAERS Safety Report 10100819 (Version 1)
Quarter: 2014Q2

REPORT INFORMATION
  Report Type: Spontaneous
  Country: US (occurrence: US)
  Receive Date: 20140423
  Receipt Date: 20140423
  Transmission Date: 20141212
  Serious: Yes (Hospitalization)
  Sender: FDA-Public Use
  Company Number: GXBR2014US001116

PATIENT
  Age: 45 Year
  Sex: Female
  Weight: 81.63 kg

DRUGS (8)
  1. ENOXAPARIN SODIUM [Suspect]
     Indication: THROMBOPHLEBITIS SUPERFICIAL
     Dosage: 80 MG, ONCE/SINGLE
     Route: 058
     Dates: start: 20140401, end: 20140401
  2. ALBUTEROL HFA [Concomitant]
     Indication: ASTHMA
     Dosage: UNK DF, PRN
     Route: 055
  3. LABETALOL [Concomitant]
     Indication: HYPERTENSION
     Dosage: 300 MG, BID
  4. SINGULAIR [Concomitant]
     Indication: HYPERSENSITIVITY
     Dosage: UNK DF, UNK
  5. PREVACID [Concomitant]
     Indication: GASTRITIS
     Dosage: 30 MG, BID
  6. BENADRYL /OLD FORM/ [Concomitant]
     Dosage: UNK DF, QHS
  7. ZYRTEC [Concomitant]
     Indication: HYPERSENSITIVITY
     Dosage: UNK DF, UNK
  8. PREDNISONE [Concomitant]
     Indication: GASTROINTESTINAL DISORDER
     Dosage: 20 MG, QD
     Route: 048

REACTIONS (1)
  - Chest pain [Recovered/Resolved]
